FAERS Safety Report 24883372 (Version 2)
Quarter: 2025Q4

REPORT INFORMATION
  Report Type: Spontaneous
  Country: JP (occurrence: JP)
  Receive Date: 20250124
  Receipt Date: 20251201
  Transmission Date: 20260118
  Serious: Yes (Hospitalization, Other)
  Sender: SANOFI AVENTIS
  Company Number: JP-SA-2025SA023777

PATIENT
  Sex: Female

DRUGS (21)
  1. OXALIPLATIN [Suspect]
     Active Substance: OXALIPLATIN
     Indication: Gastric cancer stage IV
     Dosage: 130 MG (INFUSION SOLUTION 50MG)
     Route: 041
     Dates: start: 20241015, end: 20241222
  2. OXALIPLATIN [Suspect]
     Active Substance: OXALIPLATIN
     Indication: Metastases to liver
  3. OXALIPLATIN [Suspect]
     Active Substance: OXALIPLATIN
     Indication: Metastases to lung
  4. OXALIPLATIN [Suspect]
     Active Substance: OXALIPLATIN
     Indication: Metastases to bone
  5. OXALIPLATIN [Suspect]
     Active Substance: OXALIPLATIN
     Indication: Metastases to lymph nodes
  6. OXALIPLATIN [Suspect]
     Active Substance: OXALIPLATIN
     Indication: Metastases to peritoneum
  7. CAPECITABINE [Suspect]
     Active Substance: CAPECITABINE
     Indication: Gastric cancer stage IV
     Dosage: UNK
     Route: 048
     Dates: start: 20241015, end: 20241222
  8. CAPECITABINE [Suspect]
     Active Substance: CAPECITABINE
     Indication: Metastases to liver
  9. CAPECITABINE [Suspect]
     Active Substance: CAPECITABINE
     Indication: Metastases to lung
  10. CAPECITABINE [Suspect]
     Active Substance: CAPECITABINE
     Indication: Metastases to bone
  11. CAPECITABINE [Suspect]
     Active Substance: CAPECITABINE
     Indication: Metastases to lymph nodes
  12. CAPECITABINE [Suspect]
     Active Substance: CAPECITABINE
     Indication: Metastases to peritoneum
  13. VYLOY [Suspect]
     Active Substance: ZOLBETUXIMAB-CLZB
     Indication: Gastric cancer stage IV
     Dosage: 800 MG
     Route: 042
     Dates: start: 20241015, end: 20241223
  14. VYLOY [Suspect]
     Active Substance: ZOLBETUXIMAB-CLZB
     Indication: Metastases to liver
  15. VYLOY [Suspect]
     Active Substance: ZOLBETUXIMAB-CLZB
     Indication: Metastases to lung
  16. VYLOY [Suspect]
     Active Substance: ZOLBETUXIMAB-CLZB
     Indication: Metastases to bone
  17. VYLOY [Suspect]
     Active Substance: ZOLBETUXIMAB-CLZB
     Indication: Metastases to lymph nodes
  18. VYLOY [Suspect]
     Active Substance: ZOLBETUXIMAB-CLZB
     Indication: Metastases to peritoneum
  19. VEMLIDY [Suspect]
     Active Substance: TENOFOVIR ALAFENAMIDE FUMARATE
     Indication: Chronic hepatitis B
     Dosage: 25 MG
     Route: 048
     Dates: start: 20241015, end: 20241224
  20. ZOLEDRONIC ACID [Suspect]
     Active Substance: ZOLEDRONIC ACID
     Indication: Hypercalcaemia
     Dosage: 4 MG, Q4W
     Route: 042
     Dates: start: 20241015, end: 20241222
  21. ESOMEPRAZOLE MAGNESIUM [Concomitant]
     Active Substance: ESOMEPRAZOLE MAGNESIUM
     Indication: Gastric ulcer
     Dosage: 20 MG
     Route: 048
     Dates: start: 20241015, end: 20241224

REACTIONS (1)
  - Fanconi syndrome [Recovered/Resolved]

NARRATIVE: CASE EVENT DATE: 20241223
